FAERS Safety Report 15672152 (Version 1)
Quarter: 2018Q4

REPORT INFORMATION
  Report Type: Spontaneous
  Country: BR (occurrence: BR)
  Receive Date: 20181129
  Receipt Date: 20181129
  Transmission Date: 20190205
  Serious: Yes (Other)
  Sender: FDA-Public Use
  Company Number: BR-PFIZER INC-2018333907

PATIENT
  Age: 55 Year
  Sex: Male
  Weight: 67 kg

DRUGS (7)
  1. MAGNESIUM [Concomitant]
     Active Substance: MAGNESIUM
     Dosage: 1 TABLET, DAILY
     Route: 048
  2. IMOSEC [Concomitant]
     Active Substance: LOPERAMIDE
     Indication: DIARRHOEA
     Dosage: UNK UNK, AS NEEDED
  3. OMEPRAZOLE. [Concomitant]
     Active Substance: OMEPRAZOLE
     Dosage: 1 TABLET, DAILY
  4. SUTENT [Suspect]
     Active Substance: SUNITINIB MALATE
     Indication: RENAL NEOPLASM
     Dosage: 50 MG, CYCLIC (28 DAYS ON, REST FOR 14 DAYS)
     Route: 048
     Dates: start: 20180724, end: 20180807
  5. SUTENT [Suspect]
     Active Substance: SUNITINIB MALATE
     Dosage: 37.5 MG, CYCLIC (DAILY, GIVEN IN 2 WEEKS WITH PAUSE IN 1 WEEK, THEN 2 MORE WEEKS WITH A PAUSE)
     Dates: start: 20180910, end: 2018
  6. DORFLEX [Concomitant]
     Active Substance: CAFFEINE\DIPYRONE\ORPHENADRINE
     Indication: PAIN
     Dosage: UNK, AS NEEDED
  7. VOTRIENT [Suspect]
     Active Substance: PAZOPANIB HYDROCHLORIDE
     Indication: RENAL NEOPLASM
     Dosage: UNK
     Dates: start: 20170308, end: 20180525

REACTIONS (17)
  - Mucosal inflammation [Unknown]
  - Stomatitis [Unknown]
  - Hyperaemia [Unknown]
  - Face injury [Unknown]
  - Skin toxicity [Unknown]
  - Rash [Unknown]
  - Skin exfoliation [Unknown]
  - Constipation [Unknown]
  - Palmar-plantar erythrodysaesthesia syndrome [Unknown]
  - Skin papilloma [Unknown]
  - Nasal injury [Unknown]
  - Fatigue [Unknown]
  - Ageusia [Unknown]
  - Mouth injury [Unknown]
  - Pain in extremity [Unknown]
  - Ear injury [Unknown]
  - Eye injury [Unknown]

NARRATIVE: CASE EVENT DATE: 2018
